FAERS Safety Report 24137828 (Version 1)
Quarter: 2024Q3

REPORT INFORMATION
  Report Type: Spontaneous
  Country: US (occurrence: None)
  Receive Date: 20240725
  Receipt Date: 20240725
  Transmission Date: 20241016
  Serious: Yes (Disabling)
  Sender: Public
  Company Number: None

PATIENT
  Age: 48 Year
  Sex: Female
  Weight: 53.55 kg

DRUGS (10)
  1. GADAVIST [Suspect]
     Active Substance: GADOBUTROL
     Indication: Magnetic resonance imaging
     Dosage: OTHER FREQUENCY : GIVEN ONCE;?
     Route: 042
     Dates: start: 20240719, end: 20240719
  2. GADAVIST [Suspect]
     Active Substance: GADOBUTROL
     Indication: Scan with contrast
  3. GADAVIST [Suspect]
     Active Substance: GADOBUTROL
     Indication: Scan with contrast
  4. GADAVIST [Suspect]
     Active Substance: GADOBUTROL
     Indication: Scan with contrast
  5. ESTRADIOL TRANSDERMAL SYSTEM [Concomitant]
     Active Substance: ESTRADIOL
  6. pregesterone [Concomitant]
  7. liver support supplement chlorella magnesium glycinate [Concomitant]
  8. ZINC [Concomitant]
     Active Substance: ZINC
  9. VITAMIN C [Concomitant]
     Active Substance: ASCORBIC ACID
  10. nac [Concomitant]

REACTIONS (10)
  - Dizziness [None]
  - Nausea [None]
  - Bedridden [None]
  - Fatigue [None]
  - Dizziness [None]
  - Brain fog [None]
  - Bradykinesia [None]
  - Hypermetropia [None]
  - Condition aggravated [None]
  - Post procedural complication [None]

NARRATIVE: CASE EVENT DATE: 20240719
